FAERS Safety Report 4526371-3 (Version None)
Quarter: 2004Q4

REPORT INFORMATION
  Report Type: 
  Country: None (occurrence: None)
  Receive Date: 20041214
  Receipt Date: 20041202
  Transmission Date: 20050328
  Serious: Yes (Hospitalization)
  Sender: FDA-Public Use
  Company Number: US-GLAXOSMITHKLINE-A0536687A

PATIENT
  Sex: Male

DRUGS (1)
  1. TUMS [Suspect]
     Route: 048

REACTIONS (10)
  - DIZZINESS [None]
  - DYSPNOEA [None]
  - FOOD POISONING [None]
  - HEADACHE [None]
  - HEART RATE INCREASED [None]
  - MIGRAINE [None]
  - MYALGIA [None]
  - OROPHARYNGEAL SWELLING [None]
  - SINUS PAIN [None]
  - TRICHINIASIS [None]
